FAERS Safety Report 22612067 (Version 2)
Quarter: 2024Q1

REPORT INFORMATION
  Report Type: Spontaneous
  Country: CA (occurrence: CA)
  Receive Date: 20230617
  Receipt Date: 20240122
  Transmission Date: 20240410
  Serious: Yes (Hospitalization, Other)
  Sender: FDA-Public Use
  Company Number: CA-AUROBINDO-AUR-APL-2023-042043

PATIENT
  Age: 53 Year
  Sex: Female

DRUGS (11)
  1. PROGESTERONE [Suspect]
     Active Substance: PROGESTERONE
     Indication: Product used for unknown indication
     Dosage: 100 MILLIGRAM
     Route: 065
  2. VENLAFAXINE [Suspect]
     Active Substance: VENLAFAXINE HYDROCHLORIDE
     Indication: Product used for unknown indication
     Dosage: 150 MILLIGRAM
     Route: 065
  3. BIFIDOBACTERIUM BIFIDUM [Suspect]
     Active Substance: BIFIDOBACTERIUM BIFIDUM
     Indication: Product used for unknown indication
     Dosage: UNK UNK, 3 TIMES A DAY
     Route: 048
  4. BUDESONIDE\FORMOTEROL FUMARATE [Suspect]
     Active Substance: BUDESONIDE\FORMOTEROL FUMARATE
     Indication: Product used for unknown indication
     Dosage: UNK UNK, TWO TIMES A DAY
     Route: 065
  5. LINOLEIC ACID, CONJUGATED [Suspect]
     Active Substance: LINOLEIC ACID, CONJUGATED
     Indication: Product used for unknown indication
     Dosage: UNK UNK, 3 TIMES A DAY
     Route: 048
  6. ESTRADIOL [Suspect]
     Active Substance: ESTRADIOL
     Indication: Product used for unknown indication
     Dosage: 50 MICROGRAM, ONCE A DAY
     Route: 062
  7. LORAZEPAM [Suspect]
     Active Substance: LORAZEPAM
     Indication: Product used for unknown indication
     Dosage: 1 MILLIGRAM, ONCE A DAY
     Route: 065
  8. DIMETHYL SULFONE [Suspect]
     Active Substance: DIMETHYL SULFONE
     Indication: Product used for unknown indication
     Dosage: UNK
     Route: 065
  9. VARENICLINE TARTRATE [Suspect]
     Active Substance: VARENICLINE TARTRATE
     Indication: Product used for unknown indication
     Dosage: 0.5 MILLIGRAM, ONCE A DAY
     Route: 065
  10. VITAMIN D [Suspect]
     Active Substance: VITAMIN D NOS
     Indication: Product used for unknown indication
     Dosage: 1 DOSAGE FORM, ONCE A DAY
     Route: 048
  11. DIMETHYL SULFONE [Suspect]
     Active Substance: DIMETHYL SULFONE
     Indication: Product used for unknown indication
     Dosage: UNK
     Route: 065

REACTIONS (1)
  - Hepatotoxicity [Recovered/Resolved]
